FAERS Safety Report 5904633-2 (Version None)
Quarter: 2008Q3

REPORT INFORMATION
  Report Type: 
  Country: None (occurrence: None)
  Receive Date: 20080930
  Receipt Date: 20080930
  Transmission Date: 20090109
  Serious: Yes (Hospitalization)
  Sender: FDA-Public Use
  Company Number: None

PATIENT
  Age: 73 Year
  Sex: Male

DRUGS (2)
  1. DOCETAXEL [Suspect]
     Indication: NON-SMALL CELL LUNG CANCER
     Dosage: 150 MG ONCE IV
     Route: 042
     Dates: start: 20080811, end: 20080811
  2. CARBOPLATIN [Suspect]
     Indication: NON-SMALL CELL LUNG CANCER
     Dosage: 670 MG ONCE IV
     Route: 042
     Dates: start: 20080811, end: 20080811

REACTIONS (3)
  - ENTEROCOLITIS [None]
  - FEBRILE NEUTROPENIA [None]
  - SEPSIS [None]
